FAERS Safety Report 14775536 (Version 2)
Quarter: 2018Q2

REPORT INFORMATION
  Report Type: Spontaneous
  Country: US (occurrence: US)
  Receive Date: 20180418
  Receipt Date: 20180425
  Transmission Date: 20180711
  Serious: Yes (Life-Threatening, Other)
  Sender: FDA-Public Use
  Company Number: US-AMGEN-USASP2018049088

PATIENT
  Age: 30 Year
  Sex: Male

DRUGS (3)
  1. MORPHINE [Concomitant]
     Active Substance: MORPHINE
     Dosage: UNK
  2. TRAMADOL. [Concomitant]
     Active Substance: TRAMADOL
     Dosage: UNK
  3. ENBREL [Suspect]
     Active Substance: ETANERCEPT
     Indication: ANKYLOSING SPONDYLITIS
     Dosage: 50 MG, QWK
     Route: 065
     Dates: start: 201709, end: 201802

REACTIONS (9)
  - Eczema [Unknown]
  - Injection site swelling [Recovered/Resolved]
  - Swollen tongue [Unknown]
  - Injection site erythema [Recovered/Resolved]
  - Throat tightness [Unknown]
  - Injection site mass [Recovered/Resolved]
  - Arthritis [Unknown]
  - Ear infection [Unknown]
  - Lip swelling [Unknown]

NARRATIVE: CASE EVENT DATE: 2017
